FAERS Safety Report 5890279-1 (Version None)
Quarter: 2008Q3

REPORT INFORMATION
  Report Type: 
  Country: None (occurrence: None)
  Receive Date: 20080918
  Receipt Date: 20080902
  Transmission Date: 20090109
  Serious: Yes (Other)
  Sender: FDA-Public Use
  Company Number: 2008PV036573

PATIENT
  Age: 40 Year
  Sex: Female

DRUGS (3)
  1. SYMLIN [Suspect]
     Indication: TYPE 2 DIABETES MELLITUS
     Dosage: 120 MCG; TID; SC, 60 MCG; TID; SC
     Route: 058
     Dates: start: 20080715, end: 20080101
  2. SYMLIN [Suspect]
     Indication: TYPE 2 DIABETES MELLITUS
     Dosage: 120 MCG; TID; SC, 60 MCG; TID; SC
     Route: 058
     Dates: start: 20080101
  3. HUMALOG [Suspect]
     Indication: TYPE 2 DIABETES MELLITUS
     Dosage: 10 UNITS; QAM, 15 UNITS; QPM

REACTIONS (2)
  - BLOOD GLUCOSE DECREASED [None]
  - FALL [None]
